FAERS Safety Report 6407320-X (Version None)
Quarter: 2009Q4

REPORT INFORMATION
  Report Type: 
  Country: None (occurrence: None)
  Receive Date: 20091020
  Receipt Date: 20091014
  Transmission Date: 20100525
  Serious: Yes (Other)
  Sender: FDA-Public Use
  Company Number: B0590586A

PATIENT

DRUGS (7)
  1. RETROVIR [Suspect]
     Indication: ANTIRETROVIRAL THERAPY
     Route: 065
  2. VIDEX [Suspect]
     Indication: DRUG USE FOR UNKNOWN INDICATION
     Route: 065
  3. SUSTIVA [Suspect]
     Indication: ANTIRETROVIRAL THERAPY
     Route: 065
  4. INVIRASE [Suspect]
     Indication: DRUG USE FOR UNKNOWN INDICATION
     Route: 065
  5. NORVIR [Suspect]
     Indication: DRUG USE FOR UNKNOWN INDICATION
     Route: 065
  6. SELENIUM [Suspect]
     Indication: DRUG USE FOR UNKNOWN INDICATION
     Route: 065
  7. MULTI-VITAMIN [Suspect]
     Indication: DRUG USE FOR UNKNOWN INDICATION
     Route: 065

REACTIONS (9)
  - ABNORMAL DREAMS [None]
  - DRUG INTERACTION [None]
  - ERECTILE DYSFUNCTION [None]
  - LIVER INJURY [None]
  - NAIL DISORDER [None]
  - RENAL IMPAIRMENT [None]
  - SKIN ULCER [None]
  - THIRST [None]
  - VISUAL ACUITY REDUCED [None]
